FAERS Safety Report 22602863 (Version 1)
Quarter: 2023Q2

REPORT INFORMATION
  Report Type: Report from Study
  Country: US (occurrence: US)
  Receive Date: 20230615
  Receipt Date: 20230615
  Transmission Date: 20230721
  Serious: No
  Sender: FDA-Public Use
  Company Number: US-ACADIA PHARMACEUTICALS INC.-ACA-2023-PIM-001971

PATIENT
  Sex: Male

DRUGS (26)
  1. NUPLAZID [Suspect]
     Active Substance: PIMAVANSERIN TARTRATE
     Indication: Parkinson^s disease
     Dosage: 34 MILLIGRAM, QD
     Route: 048
     Dates: start: 20220525
  2. ALBUTEROL [Concomitant]
     Active Substance: ALBUTEROL
     Dosage: 2 MILLIGRAM
  3. AMLODIPINE [Concomitant]
     Active Substance: AMLODIPINE BESYLATE
     Dosage: 2.5MG
  4. BREO ELLIPTA [Concomitant]
     Active Substance: FLUTICASONE FUROATE\VILANTEROL TRIFENATATE
     Dosage: 100-25
  5. CLONAZEPAM [Concomitant]
     Active Substance: CLONAZEPAM
     Dosage: 1 MILLIGRAM
  6. COREG [Concomitant]
     Active Substance: CARVEDILOL
     Dosage: 6.25MG
  7. CRESTOR [Concomitant]
     Active Substance: ROSUVASTATIN CALCIUM
     Dosage: 40 MILLIGRAM
  8. ELIQUIS [Concomitant]
     Active Substance: APIXABAN
     Dosage: 5 MILLIGRAM
  9. FLOMAX [Concomitant]
     Active Substance: TAMSULOSIN HYDROCHLORIDE
     Dosage: 0.4 MG
  10. HUMULIN R [Concomitant]
     Active Substance: INSULIN HUMAN
     Dosage: U-100
  11. ISOSORBIDE MONONITRATE [Concomitant]
     Active Substance: ISOSORBIDE MONONITRATE
     Dosage: 30 MILLIGRAM ER
  12. LASIX [Concomitant]
     Active Substance: FUROSEMIDE
     Dosage: 40 MILLIGRAM
  13. LISINOPRIL [Concomitant]
     Active Substance: LISINOPRIL
     Dosage: 20 MILLIGRAM
  14. LYRICA [Concomitant]
     Active Substance: PREGABALIN
     Dosage: 100 MILLIGRAM
  15. METFORMIN [Concomitant]
     Active Substance: METFORMIN HYDROCHLORIDE
     Dosage: 500 MILLIGRAM ER
  16. NITROGLYCERIN [Concomitant]
     Active Substance: NITROGLYCERIN
     Dosage: SUB 0.6MG
     Route: 060
  17. POTASSIUM [Concomitant]
     Active Substance: POTASSIUM
     Dosage: 99 MILLIGRAM
  18. PREVALITE [Concomitant]
     Active Substance: CHOLESTYRAMINE
     Dosage: 4 MILLIGRAM
  19. OMEPRAZOLE [Concomitant]
     Active Substance: OMEPRAZOLE
     Dosage: 40 MILLIGRAM
  20. SINEMET [Concomitant]
     Active Substance: CARBIDOPA\LEVODOPA
     Dosage: 10-100MG
  21. SOTALOL [Concomitant]
     Active Substance: SOTALOL
     Dosage: 120 MILLIGRAM AF
  22. SYNTHROID [Concomitant]
     Active Substance: LEVOTHYROXINE SODIUM
     Dosage: 137 MICROGRAM
  23. TESTOSTERONE CYPIONATE [Concomitant]
     Active Substance: TESTOSTERONE CYPIONATE
     Dosage: 200MG/ML
  24. TRAMADOL HCL [Concomitant]
     Active Substance: TRAMADOL HYDROCHLORIDE
     Dosage: 50 MILLIGRAM
  25. TRAZODONE [Concomitant]
     Active Substance: TRAZODONE HYDROCHLORIDE
     Dosage: 50 MILLIGRAM
  26. VENLAFAXINE [Concomitant]
     Active Substance: VENLAFAXINE HYDROCHLORIDE
     Dosage: 37.5 ER

REACTIONS (2)
  - Product dose omission issue [Unknown]
  - Confusional state [Unknown]
